FAERS Safety Report 5483493-0 (Version None)
Quarter: 2007Q4

REPORT INFORMATION
  Report Type: 
  Country: None (occurrence: None)
  Receive Date: 20071009
  Receipt Date: 20070926
  Transmission Date: 20080405
  Serious: Yes (Death)
  Sender: FDA-Public Use
  Company Number: S05-USA-02334-01

PATIENT
  Age: 48 Year
  Sex: Male
  Weight: 90.7194 kg

DRUGS (1)
  1. CELEXA [Suspect]
     Dates: start: 20020807, end: 20020813

REACTIONS (9)
  - ADVERSE DRUG REACTION [None]
  - AORTIC INJURY [None]
  - EXCORIATION [None]
  - HAEMORRHAGE [None]
  - HAEMOTHORAX [None]
  - HEART INJURY [None]
  - INJURY [None]
  - INTENTIONAL SELF-INJURY [None]
  - WOUND [None]
